FAERS Safety Report 8061285-6 (Version None)
Quarter: 2012Q1

REPORT INFORMATION
  Report Type: 
  Country: None (occurrence: None)
  Receive Date: 20120120
  Receipt Date: 20110815
  Transmission Date: 20120608
  Serious: No
  Sender: FDA-Public Use
  Company Number: US-ALLERGAN-1110946US

PATIENT
  Age: 82 Year
  Sex: Male

DRUGS (3)
  1. DIABETES MEDICATIONS [Concomitant]
     Indication: DIABETES MELLITUS
     Dosage: UNK
  2. RESTASIS [Suspect]
     Indication: DRY EYE
     Dosage: 1 GTT, SINGLE USE TO LEFT EYE
     Route: 047
     Dates: start: 20110729, end: 20110729
  3. EYE DROPS [Concomitant]
     Dosage: TAKEN PRIOR TO RESTASIS

REACTIONS (2)
  - LIP SWELLING [None]
  - RASH [None]
